FAERS Safety Report 5501123-6 (Version None)
Quarter: 2007Q4

REPORT INFORMATION
  Report Type: 
  Country: None (occurrence: None)
  Receive Date: 20071029
  Receipt Date: 20071017
  Transmission Date: 20080405
  Serious: Yes (Death, Hospitalization)
  Sender: FDA-Public Use
  Company Number: US-PFIZER INC-2007082887

PATIENT
  Age: 56 Year
  Sex: Female
  Weight: 36.1 kg

DRUGS (1)
  1. SUTENT [Suspect]
     Indication: SQUAMOUS CELL CARCINOMA
     Route: 048
     Dates: start: 20070425, end: 20070922

REACTIONS (1)
  - TUMOUR HAEMORRHAGE [None]
